FAERS Safety Report 5318034-1 (Version None)
Quarter: 2007Q2

REPORT INFORMATION
  Report Type: 
  Country: None (occurrence: None)
  Receive Date: 20070507
  Receipt Date: 20070426
  Transmission Date: 20071010
  Serious: Yes (Hospitalization)
  Sender: FDA-Public Use
  Company Number: FR-ROCHE-494917

PATIENT
  Age: 22 Year
  Sex: Female

DRUGS (2)
  1. LOXEN [Suspect]
     Indication: THREATENED LABOUR
     Dosage: INDICATION: TOCOLYSIS; 6 MG/HR
     Route: 042
     Dates: start: 20070209, end: 20070212
  2. CELESTENE [Suspect]
     Indication: DRUG USE FOR UNKNOWN INDICATION
     Route: 042
     Dates: start: 20060209

REACTIONS (1)
  - ACUTE PULMONARY OEDEMA [None]
